FAERS Safety Report 5170616-6 (Version None)
Quarter: 2006Q4

REPORT INFORMATION
  Report Type: 
  Country: None (occurrence: None)
  Receive Date: 20061205
  Receipt Date: 20061124
  Transmission Date: 20070319
  Serious: Yes (Hospitalization)
  Sender: FDA-Public Use
  Company Number: 2006145408

PATIENT
  Age: 70 Year
  Sex: Female

DRUGS (5)
  1. DOXORUBICIN HCL [Suspect]
     Indication: LYMPHOMA
     Dosage: CYCLICAL
  2. CYCLOPHOSPHAMIDE [Suspect]
     Indication: LYMPHOMA
     Dosage: CYCLICAL
  3. MABTHERA (RITUXIMAB) [Suspect]
     Indication: LYMPHOMA
     Dosage: CYCLICAL
  4. PREDNISONE TAB [Suspect]
     Indication: LYMPHOMA
     Dosage: CYCLICAL
  5. VINCRISTINE [Suspect]
     Indication: LYMPHOMA
     Dosage: CYCLICAL

REACTIONS (2)
  - CENTRAL PONTINE MYELINOLYSIS [None]
  - CEREBROVASCULAR ACCIDENT [None]
